FAERS Safety Report 4741346-7 (Version None)
Quarter: 2005Q3

REPORT INFORMATION
  Report Type: 
  Country: None (occurrence: None)
  Receive Date: 20050803
  Receipt Date: 20050119
  Transmission Date: 20060218
  Serious: Yes (Life-Threatening, Hospitalization)
  Sender: FDA-Public Use
  Company Number: 2005-01-1395

PATIENT
  Age: 42 Year
  Sex: Male
  Weight: 99 kg

DRUGS (6)
  1. INTRON A [Suspect]
     Indication: MALIGNANT MELANOMA
     Dosage: SEE IMAGE
     Dates: start: 20041001, end: 20041101
  2. INTRON A [Suspect]
     Indication: MALIGNANT MELANOMA
     Dosage: SEE IMAGE
     Dates: start: 20041001, end: 20050101
  3. INTRON A [Suspect]
     Indication: MALIGNANT MELANOMA
     Dosage: SEE IMAGE
     Dates: start: 20041101, end: 20050101
  4. INDOMETHACIN [Concomitant]
  5. BENADRYL [Concomitant]
  6. PRILOSEC [Concomitant]

REACTIONS (2)
  - PULMONARY EMBOLISM [None]
  - THROMBOSIS [None]
